FAERS Safety Report 6467528-4 (Version None)
Quarter: 2009Q4

REPORT INFORMATION
  Report Type: 
  Country: None (occurrence: None)
  Receive Date: 20091127
  Receipt Date: 20091119
  Transmission Date: 20100525
  Serious: Yes (Hospitalization)
  Sender: FDA-Public Use
  Company Number: 2009AL007367

PATIENT
  Age: 5 Year
  Sex: Male

DRUGS (4)
  1. LEVETIRACETAM [Suspect]
     Indication: PARTIAL SEIZURES
  2. VALPROATE SODIUM [Concomitant]
  3. OXCARBAZEPINE [Concomitant]
  4. LAMOTRIGINE [Concomitant]

REACTIONS (9)
  - AGGRESSION [None]
  - DECREASED APPETITE [None]
  - DECREASED INTEREST [None]
  - DEPRESSION [None]
  - DISTURBANCE IN ATTENTION [None]
  - FATIGUE [None]
  - INSOMNIA [None]
  - IRRITABILITY [None]
  - UNRESPONSIVE TO STIMULI [None]
